FAERS Safety Report 21358324 (Version 1)
Quarter: 2022Q3

REPORT INFORMATION
  Report Type: Spontaneous
  Country: US (occurrence: None)
  Receive Date: 20220920
  Receipt Date: 20220920
  Transmission Date: 20221027
  Serious: No
  Sender: FDA-Public Use
  Company Number: None

PATIENT
  Age: 52 Year
  Sex: Male
  Weight: 81.68 kg

DRUGS (3)
  1. MEKTOVI [Suspect]
     Active Substance: BINIMETINIB
     Indication: Metastases to central nervous system
     Dosage: 30MG TWICE DAILY ORAL?
     Route: 048
     Dates: start: 202105
  2. BRAFTOVI [Suspect]
     Active Substance: ENCORAFENIB
     Indication: Metastases to central nervous system
     Dosage: 150MG ONCE DAILY ORAL?
     Route: 048
     Dates: start: 202105
  3. PREDNISONE [Concomitant]
     Active Substance: PREDNISONE

REACTIONS (2)
  - Metastases to central nervous system [None]
  - Disease progression [None]
